FAERS Safety Report 7960291-7 (Version None)
Quarter: 2011Q4

REPORT INFORMATION
  Report Type: 
  Country: None (occurrence: None)
  Receive Date: 20111206
  Receipt Date: 20111129
  Transmission Date: 20120403
  Serious: Yes (Life-Threatening, Other)
  Sender: FDA-Public Use
  Company Number: GB-ROXANE LABORATORIES, INC.-2011-RO-01705RO

PATIENT
  Age: 22 Year
  Sex: Female

DRUGS (3)
  1. AMLODIPINE BESYLATE [Suspect]
  2. CALCIUM GLUCONATE [Suspect]
     Indication: HYPOCALCAEMIA
  3. CALCIUM GLUCONATE [Suspect]
     Route: 042

REACTIONS (5)
  - HYPOCALCAEMIA [None]
  - NON-CARDIOGENIC PULMONARY OEDEMA [None]
  - TOXICITY TO VARIOUS AGENTS [None]
  - INTENTIONAL OVERDOSE [None]
  - FLUID OVERLOAD [None]
